FAERS Safety Report 4283228-3 (Version None)
Quarter: 2004Q1

REPORT INFORMATION
  Report Type: 
  Country: None (occurrence: None)
  Receive Date: 20040129
  Receipt Date: 20040121
  Transmission Date: 20041129
  Serious: Yes (Hospitalization, Disabling)
  Sender: FDA-Public Use
  Company Number: DE-JNJFOC-20040104056

PATIENT
  Sex: Male

DRUGS (1)
  1. RISPERDAL [Suspect]
     Dosage: 3 MG, IN 1 DAY, ORAL
     Route: 048

REACTIONS (3)
  - CONDITION AGGRAVATED [None]
  - FEELING ABNORMAL [None]
  - MENTAL DISORDER [None]
